FAERS Safety Report 9817219 (Version 1)
Quarter: 2014Q1

REPORT INFORMATION
  Report Type: Spontaneous
  Country: AU (occurrence: AU)
  Receive Date: 20140114
  Receipt Date: 20140114
  Transmission Date: 20141002
  Serious: Yes (Other)
  Sender: FDA-Public Use
  Company Number: AU-JNJFOC-20140103242

PATIENT
  Sex: 0

DRUGS (2)
  1. REGAINE EXTRA STRENGTH-MENS FOAM (5%) [Suspect]
     Route: 061
  2. REGAINE EXTRA STRENGTH-MENS FOAM (5% ) [Suspect]
     Indication: PRODUCT USED FOR UNKNOWN INDICATION
     Route: 061

REACTIONS (3)
  - Ocular hyperaemia [Unknown]
  - Chest pain [Unknown]
  - Dizziness [Unknown]
